FAERS Safety Report 5442050-2 (Version None)
Quarter: 2007Q3

REPORT INFORMATION
  Report Type: 
  Country: None (occurrence: None)
  Receive Date: 20070904
  Receipt Date: 20070828
  Transmission Date: 20080115
  Serious: Yes (Other)
  Sender: FDA-Public Use
  Company Number: JP-AVENTIS-200712321JP

PATIENT

DRUGS (2)
  1. TAXOTERE [Suspect]
     Route: 041
  2. VANDETANIB [Suspect]
     Route: 048

REACTIONS (1)
  - PHOTOSENSITIVITY REACTION [None]
